FAERS Safety Report 7938872 (Version 7)
Quarter: 2015Q3

REPORT INFORMATION
  Report Type: Report from Study
  Country: CA (occurrence: CA)
  Receive Date: 20110510
  Receipt Date: 20150707
  Transmission Date: 20151125
  Serious: Yes (Other)
  Sender: FDA-Public Use
  Company Number: CA-JNJFOC-20110412524

PATIENT
  Age: 55 Year
  Sex: Male
  Weight: 68.5 kg

DRUGS (3)
  1. INFLIXIMAB, RECOMBINANT [Suspect]
     Active Substance: INFLIXIMAB
     Indication: PSORIASIS
     Route: 042
     Dates: start: 20030718, end: 200410
  2. ADALIMUMAB [Concomitant]
     Active Substance: ADALIMUMAB
     Dates: start: 20101004
  3. ADALIMUMAB [Concomitant]
     Active Substance: ADALIMUMAB
     Dates: start: 200905

REACTIONS (1)
  - Prostate cancer [Recovered/Resolved]

NARRATIVE: CASE EVENT DATE: 20110316
